FAERS Safety Report 12731725 (Version 1)
Quarter: 2016Q3

REPORT INFORMATION
  Report Type: Spontaneous
  Country: US (occurrence: US)
  Receive Date: 20160909
  Receipt Date: 20160909
  Transmission Date: 20161109
  Serious: No
  Sender: FDA-Public Use
  Company Number: None

PATIENT
  Age: 78 Year
  Sex: Female
  Weight: 70.76 kg

DRUGS (11)
  1. METOPROLOL. [Concomitant]
     Active Substance: METOPROLOL
  2. ZOLPIDEM [Concomitant]
     Active Substance: ZOLPIDEM\ZOLPIDEM TARTRATE
  3. VITAMIN D [Concomitant]
     Active Substance: CHOLECALCIFEROL
  4. CRESTOR [Suspect]
     Active Substance: ROSUVASTATIN CALCIUM
     Indication: BLOOD CHOLESTEROL
     Dates: start: 20150228, end: 20160727
  5. GABAPENTIN. [Concomitant]
     Active Substance: GABAPENTIN
  6. BABY ASPIRIN [Concomitant]
     Active Substance: ASPIRIN
  7. LOSARTAN. [Concomitant]
     Active Substance: LOSARTAN
  8. PLAVIX [Concomitant]
     Active Substance: CLOPIDOGREL BISULFATE
  9. LEVOTHYROXINE. [Concomitant]
     Active Substance: LEVOTHYROXINE
  10. PANTOPRAZOLE [Concomitant]
     Active Substance: PANTOPRAZOLE SODIUM
  11. CODIENE [Concomitant]
     Active Substance: CODEINE

REACTIONS (5)
  - Gait disturbance [None]
  - Asthenia [None]
  - Dizziness [None]
  - Nausea [None]
  - Impaired self-care [None]

NARRATIVE: CASE EVENT DATE: 20150627
